FAERS Safety Report 7134473-0 (Version None)
Quarter: 2010Q4

REPORT INFORMATION
  Report Type: 
  Country: None (occurrence: None)
  Receive Date: 20101203
  Receipt Date: 20101130
  Transmission Date: 20110411
  Serious: Yes (Other)
  Sender: FDA-Public Use
  Company Number: AU-PFIZER INC-2010159809

PATIENT
  Sex: Female

DRUGS (2)
  1. AROMASIN [Suspect]
     Indication: BREAST CANCER
  2. TEGRETOL [Concomitant]

REACTIONS (3)
  - BREAST INFECTION [None]
  - CONFUSIONAL AROUSAL [None]
  - DEJA VU [None]
